FAERS Safety Report 20986397 (Version 2)
Quarter: 2023Q4

REPORT INFORMATION
  Report Type: Spontaneous
  Country: US (occurrence: US)
  Receive Date: 20220621
  Receipt Date: 20231111
  Transmission Date: 20240110
  Serious: Yes (Other)
  Sender: FDA-Public Use
  Company Number: US-UCBSA-2022033965

PATIENT
  Age: 23 Year
  Sex: Male
  Weight: 83.1 kg

DRUGS (11)
  1. BRIVIACT [Suspect]
     Active Substance: BRIVARACETAM
     Indication: Seizure
     Dosage: 100 MILLIGRAM, 2X/DAY (BID)
     Route: 048
     Dates: start: 2022
  2. BRIVIACT [Suspect]
     Active Substance: BRIVARACETAM
     Dosage: 112.5 MILLIGRAM, 2X/DAY (BID) (FATIGUE 125 MGBID)
     Route: 048
     Dates: start: 2022
  3. VIMPAT [Suspect]
     Active Substance: LACOSAMIDE
     Indication: Seizure
     Dosage: 250 MG IN AM AND 200 MG IN PM
     Route: 048
  4. VIMPAT [Suspect]
     Active Substance: LACOSAMIDE
     Dosage: 50 MILLIGRAM IN THE AM ONLY.
     Route: 048
     Dates: start: 202209
  5. AMOXICILLIN [Concomitant]
     Active Substance: AMOXICILLIN
     Indication: Product used for unknown indication
     Dosage: 875 MILLIGRAM, 2X/DAY (BID)
     Route: 048
     Dates: start: 20230626
  6. FYCOMPA [Concomitant]
     Active Substance: PERAMPANEL
     Indication: Seizure
     Dosage: EVERY DAY AT EVERY NIGHT
     Route: 048
     Dates: start: 20230628
  7. LAMOTRIGINE [Concomitant]
     Active Substance: LAMOTRIGINE
     Indication: Seizure
     Dosage: 200 MILLIGRAM, 2X/DAY (BID), TABLET,EXTENDED RELEASE 24 BR
     Route: 048
     Dates: start: 20230728
  8. LORAZEPAM [Concomitant]
     Active Substance: LORAZEPAM
     Indication: Seizure
     Dosage: 0.5 MILLIGRAM (1 TABLET), AS NEEDED (PRN)
     Route: 048
     Dates: start: 20230509
  9. XCOPRI [Concomitant]
     Active Substance: CENOBAMATE
     Indication: Seizure
     Dosage: 100 MILLIGRAM, FOR 30 DAYS
     Route: 048
     Dates: start: 20230625
  10. CLONAZEPAM [Concomitant]
     Active Substance: CLONAZEPAM
     Indication: Seizure
     Dosage: UNK, AS NEEDED (PRN)
  11. VALTOCO [Concomitant]
     Active Substance: DIAZEPAM
     Indication: Seizure
     Dosage: UNK (A NEEDED (PRN)

REACTIONS (6)
  - Seizure [Unknown]
  - Generalised tonic-clonic seizure [Unknown]
  - COVID-19 [Unknown]
  - Prescribed overdose [Unknown]
  - Off label use [Unknown]
  - Wrong technique in product usage process [Unknown]

NARRATIVE: CASE EVENT DATE: 20220413
